FAERS Safety Report 5807925-0 (Version None)
Quarter: 2008Q3

REPORT INFORMATION
  Report Type: 
  Country: None (occurrence: None)
  Receive Date: 20080711
  Receipt Date: 20080630
  Transmission Date: 20090109
  Serious: Yes (Other)
  Sender: FDA-Public Use
  Company Number: US-PFIZER INC-2008036870

PATIENT
  Sex: Female

DRUGS (2)
  1. LYRICA [Suspect]
     Indication: PAIN
     Dosage: DAILY DOSE:150MG
  2. GABAPENTIN [Suspect]
     Indication: PAIN

REACTIONS (5)
  - DRUG INEFFECTIVE [None]
  - MANIA [None]
  - MENTAL IMPAIRMENT [None]
  - PAIN [None]
  - SUICIDAL IDEATION [None]
